FAERS Safety Report 7996325-3 (Version None)
Quarter: 2011Q4

REPORT INFORMATION
  Report Type: 
  Country: None (occurrence: None)
  Receive Date: 20111220
  Receipt Date: 20111205
  Transmission Date: 20120403
  Serious: Yes (Other)
  Sender: FDA-Public Use
  Company Number: KR-WATSON-2011-21568

PATIENT
  Age: 39 Year
  Sex: Male

DRUGS (1)
  1. PREDNISOLONE [Suspect]
     Indication: IMMUNOSUPPRESSION
     Dosage: 10 MG, DAILY
     Route: 065

REACTIONS (2)
  - CHORIORETINOPATHY [None]
  - RETINAL PIGMENT EPITHELIOPATHY [None]
